FAERS Safety Report 12069730 (Version 2)
Quarter: 2016Q2

REPORT INFORMATION
  Report Type: Spontaneous
  Country: JP (occurrence: JP)
  Receive Date: 20160211
  Receipt Date: 20160401
  Transmission Date: 20160815
  Serious: Yes (Other)
  Sender: FDA-Public Use
  Company Number: JP-ASTRAZENECA-2016SE14120

PATIENT
  Sex: Female

DRUGS (6)
  1. SEROQUEL [Suspect]
     Active Substance: QUETIAPINE FUMARATE
     Route: 048
  2. CEREDIST [Concomitant]
     Active Substance: TALTIRELIN
     Route: 048
  3. VASOLAN [Concomitant]
     Active Substance: VERAPAMIL HYDROCHLORIDE
  4. ROZEREM [Concomitant]
     Active Substance: RAMELTEON
     Route: 048
  5. BAYASPIRIN [Concomitant]
     Active Substance: ASPIRIN
  6. RIVASTIGMINE. [Concomitant]
     Active Substance: RIVASTIGMINE
     Route: 048

REACTIONS (2)
  - Neuroleptic malignant syndrome [Unknown]
  - Urinary tract infection [Unknown]
